FAERS Safety Report 22145973 (Version 1)
Quarter: 2023Q1

REPORT INFORMATION
  Report Type: Spontaneous
  Country: JP (occurrence: None)
  Receive Date: 20230328
  Receipt Date: 20230328
  Transmission Date: 20230417
  Serious: Yes (Other)
  Sender: FDA-Public Use
  Company Number: 2023A069760

PATIENT

DRUGS (2)
  1. ONDEXXYA [Suspect]
     Active Substance: ANDEXANET ALFA
     Dosage: 00 MG IV AT A RATE OF 30 MG/MIN, FOLLOWED BY 480 MG IV AT A RATE OF 4 MG/MIN FOR 2 HOURS
     Route: 042
  2. UNSPECIFIED INGREDIENT [Concomitant]
     Active Substance: UNSPECIFIED INGREDIENT
     Dosage: DOSE UNKNOWN

REACTIONS (1)
  - Cerebral infarction [Unknown]
